FAERS Safety Report 19748616 (Version 4)
Quarter: 2021Q3

REPORT INFORMATION
  Report Type: Spontaneous
  Country: US (occurrence: US)
  Receive Date: 20210826
  Receipt Date: 20210923
  Transmission Date: 20211014
  Serious: No
  Sender: FDA-Public Use
  Company Number: US-BIOGEN-2021BI01043381

PATIENT
  Age: 35 Year
  Sex: Female

DRUGS (4)
  1. SYNTHROID [Concomitant]
     Active Substance: LEVOTHYROXINE SODIUM
     Route: 065
  2. TECFIDERA [Suspect]
     Active Substance: DIMETHYL FUMARATE
     Route: 048
  3. TECFIDERA [Suspect]
     Active Substance: DIMETHYL FUMARATE
     Indication: MULTIPLE SCLEROSIS
     Dosage: 120/240 MG STARTER PACK, (TAKE (120MG) 1 CAPSULE BY MOUTH TWICE DAILY FOR 7 DAYS, THEN (240MG) 1 ...
     Route: 048
     Dates: start: 20210820
  4. TECFIDERA [Suspect]
     Active Substance: DIMETHYL FUMARATE
     Route: 048

REACTIONS (6)
  - Pruritus [Unknown]
  - Frequent bowel movements [Unknown]
  - Dizziness [Unknown]
  - Headache [Unknown]
  - Underdose [Unknown]
  - Product dose omission issue [Unknown]

NARRATIVE: CASE EVENT DATE: 20210820
